FAERS Safety Report 4460014-2 (Version None)
Quarter: 2004Q3

REPORT INFORMATION
  Report Type: 
  Country: None (occurrence: None)
  Receive Date: 20040928
  Receipt Date: 20030924
  Transmission Date: 20050211
  Serious: No
  Sender: FDA-Public Use
  Company Number: US-GLAXOSMITHKLINE-A0427371A

PATIENT
  Age: 83 Year
  Sex: Male

DRUGS (5)
  1. SEREVENT [Suspect]
     Dosage: 1PUFF TWICE PER DAY
     Route: 055
     Dates: end: 20030917
  2. PRILOSEC [Concomitant]
  3. LASIX [Concomitant]
  4. POTASSIUM [Concomitant]
  5. IRON [Concomitant]

REACTIONS (2)
  - BLOOD SODIUM DECREASED [None]
  - DRUG INEFFECTIVE [None]
